FAERS Safety Report 11563117 (Version 3)
Quarter: 2015Q4

REPORT INFORMATION
  Report Type: Report from Study
  Country: US (occurrence: US)
  Receive Date: 20150928
  Receipt Date: 20151118
  Transmission Date: 20160304
  Serious: Yes (Hospitalization)
  Sender: FDA-Public Use
  Company Number: US-KADMON PHARMACEUTICALS, LLC-KAD201509-003365

PATIENT
  Age: 55 Year
  Sex: Male

DRUGS (19)
  1. FUROSEMIDE. [Concomitant]
     Active Substance: FUROSEMIDE
     Indication: FLUID RETENTION
     Route: 048
     Dates: start: 20150629
  2. SPIRONOLACTONE. [Concomitant]
     Active Substance: SPIRONOLACTONE
     Indication: FLUID RETENTION
     Route: 048
  3. NEXIUM [Concomitant]
     Active Substance: ESOMEPRAZOLE MAGNESIUM
     Indication: GASTROOESOPHAGEAL REFLUX DISEASE
     Route: 048
     Dates: start: 20150629
  4. ZOLPIDEME [Concomitant]
     Indication: INSOMNIA
     Route: 048
  5. RIBAVIRIN. [Suspect]
     Active Substance: RIBAVIRIN
     Indication: HEPATITIS C
     Dosage: TABLET
     Route: 048
     Dates: start: 20150726
  6. LACTULOSE. [Concomitant]
     Active Substance: LACTULOSE
     Indication: ENCEPHALOPATHY
     Route: 048
     Dates: start: 20150629
  7. CIPRO [Concomitant]
     Active Substance: CIPROFLOXACIN HYDROCHLORIDE
     Indication: PROPHYLAXIS
  8. PROVENTIL [Concomitant]
     Active Substance: ALBUTEROL
     Indication: ASTHMA
  9. CHLORDIAZEPOXIDE HCL [Concomitant]
     Active Substance: CHLORDIAZEPOXIDE HYDROCHLORIDE
     Indication: ANXIETY
     Route: 048
     Dates: start: 20150629
  10. CIPRODEX SUS [Concomitant]
     Route: 048
     Dates: start: 20150629
  11. CIPRO [Concomitant]
     Active Substance: CIPROFLOXACIN HYDROCHLORIDE
     Indication: PERITONITIS BACTERIAL
     Route: 048
     Dates: start: 20150629
  12. LORATADINE. [Concomitant]
     Active Substance: LORATADINE
     Indication: HYPERSENSITIVITY
     Route: 048
     Dates: start: 20150629
  13. MAPAP [Concomitant]
     Active Substance: ACETAMINOPHEN
     Route: 048
     Dates: start: 20150629
  14. VIEKIRA PAK [Suspect]
     Active Substance: DASABUVIR\OMBITASVIR\PARITAPREVIR\RITONAVIR
     Indication: HEPATITIS C
     Dosage: TABLET
     Route: 048
     Dates: start: 20150726
  15. ADVAIR DISKUS (SERETIDE) [Concomitant]
     Dates: start: 20150629
  16. BENZONATATE. [Concomitant]
     Active Substance: BENZONATATE
     Indication: COUGH
     Route: 048
     Dates: start: 20150629
  17. PROMETHAZINE [Concomitant]
     Active Substance: PROMETHAZINE\PROMETHAZINE HYDROCHLORIDE
     Indication: NAUSEA
     Route: 048
  18. PROVENTIL [Concomitant]
     Active Substance: ALBUTEROL
     Indication: CHRONIC OBSTRUCTIVE PULMONARY DISEASE
     Route: 048
  19. LEVOTHYROXINE. [Concomitant]
     Active Substance: LEVOTHYROXINE
     Indication: HYPOTHYROIDISM
     Route: 048
     Dates: start: 20150629

REACTIONS (13)
  - Intestinal haemorrhage [Unknown]
  - Blood sodium decreased [Recovered/Resolved]
  - Ammonia increased [Recovered/Resolved]
  - Skin exfoliation [Unknown]
  - Pain in extremity [Unknown]
  - Abdominal pain [Unknown]
  - Skin discolouration [Unknown]
  - Hypoaesthesia [Unknown]
  - Pyrexia [Unknown]
  - Gastrointestinal infection [Recovered/Resolved]
  - Pruritus [Unknown]
  - Fatigue [Unknown]
  - Myalgia [Unknown]

NARRATIVE: CASE EVENT DATE: 20150811
